FAERS Safety Report 21062972 (Version 2)
Quarter: 2022Q3

REPORT INFORMATION
  Report Type: Spontaneous
  Country: DE (occurrence: DE)
  Receive Date: 20220711
  Receipt Date: 20220714
  Transmission Date: 20221027
  Serious: Yes (Life-Threatening, Hospitalization, Other)
  Sender: FDA-Public Use
  Company Number: DE-ABBVIE-22K-062-4461772-00

PATIENT
  Age: 61 Year
  Sex: Female
  Weight: 81 kg

DRUGS (15)
  1. RINVOQ [Suspect]
     Active Substance: UPADACITINIB
     Indication: Rheumatoid arthritis
     Route: 048
     Dates: start: 202201, end: 202205
  2. RINVOQ [Suspect]
     Active Substance: UPADACITINIB
     Route: 048
     Dates: start: 20220512
  3. METHOTREXATE SODIUM [Concomitant]
     Active Substance: METHOTREXATE SODIUM
     Indication: Rheumatoid arthritis
     Dosage: 15
     Route: 058
     Dates: start: 2022, end: 20220512
  4. METHOTREXATE SODIUM [Concomitant]
     Active Substance: METHOTREXATE SODIUM
     Route: 058
     Dates: start: 20220601
  5. PREDNISOLONE [Concomitant]
     Active Substance: PREDNISOLONE
     Indication: Rheumatoid arthritis
     Dates: start: 2014
  6. CHOLECALCIFEROL [Concomitant]
     Active Substance: CHOLECALCIFEROL
     Indication: Product used for unknown indication
     Route: 048
     Dates: start: 2018
  7. TORSEMIDE [Concomitant]
     Active Substance: TORSEMIDE
     Indication: Product used for unknown indication
  8. VIGANTOL [Concomitant]
     Indication: Product used for unknown indication
  9. VITAMIN D3 [Concomitant]
     Active Substance: CHOLECALCIFEROL
     Indication: Product used for unknown indication
  10. PANTOPRAZOLE SODIUM [Concomitant]
     Active Substance: PANTOPRAZOLE SODIUM
     Indication: Product used for unknown indication
  11. ACETAMINOPHEN [Concomitant]
     Active Substance: ACETAMINOPHEN
     Indication: Product used for unknown indication
  12. SODIUM PICOSULFATE [Concomitant]
     Active Substance: SODIUM PICOSULFATE
     Indication: Product used for unknown indication
  13. LEVETIRACETAM [Concomitant]
     Active Substance: LEVETIRACETAM
     Indication: Product used for unknown indication
  14. CALCIUM IODIDE [Concomitant]
     Active Substance: CALCIUM IODIDE
     Indication: Product used for unknown indication
     Dosage: 5-0-0
  15. FOLIC ACID [Concomitant]
     Active Substance: FOLIC ACID
     Indication: Product used for unknown indication

REACTIONS (23)
  - Diverticulitis intestinal perforated [Recovered/Resolved]
  - Apnoea [Unknown]
  - Cerebrovascular accident [Unknown]
  - Generalised tonic-clonic seizure [Recovered/Resolved]
  - Transient ischaemic attack [Unknown]
  - Cerebellar atrophy [Unknown]
  - Sigmoidectomy [Recovered/Resolved]
  - Cholestasis [Unknown]
  - Oedema [Unknown]
  - Pleural effusion [Unknown]
  - Abdominal pain [Unknown]
  - Dysarthria [Unknown]
  - Hemiparesis [Unknown]
  - Paraesthesia [Unknown]
  - Chills [Unknown]
  - Pyrexia [Unknown]
  - Cholecystitis acute [Unknown]
  - Aspiration [Unknown]
  - Psychomotor skills impaired [Unknown]
  - Bladder catheterisation [Unknown]
  - Anastomotic leak [Unknown]
  - Liver abscess [Unknown]
  - Pelvic fluid collection [Unknown]

NARRATIVE: CASE EVENT DATE: 20220101
